FAERS Safety Report 20968161 (Version 1)
Quarter: 2022Q2

REPORT INFORMATION
  Report Type: Report from Study
  Country: TH (occurrence: TH)
  Receive Date: 20220616
  Receipt Date: 20220616
  Transmission Date: 20220721
  Serious: Yes (Death)
  Sender: FDA-Public Use
  Company Number: TH-NOVARTISPH-NVSC2022TH137926

PATIENT
  Age: 75 Year
  Sex: Female

DRUGS (1)
  1. KISQALI [Suspect]
     Active Substance: RIBOCICLIB
     Indication: Breast cancer metastatic
     Dosage: UNK
     Route: 048

REACTIONS (6)
  - Asthenia [Fatal]
  - Pulse abnormal [Fatal]
  - Platelet count decreased [Unknown]
  - Decreased appetite [Unknown]
  - Vomiting [Unknown]
  - Drug resistance [Unknown]

NARRATIVE: CASE EVENT DATE: 20220603
